FAERS Safety Report 17025288 (Version 1)
Quarter: 2019Q4

REPORT INFORMATION
  Report Type: Spontaneous
  Country: US (occurrence: US)
  Receive Date: 20191112
  Receipt Date: 20191112
  Transmission Date: 20200122
  Serious: Yes (Hospitalization)
  Sender: FDA-Public Use
  Company Number: None

PATIENT
  Age: 24 Year
  Sex: Female
  Weight: 63 kg

DRUGS (2)
  1. CIMZIA [Suspect]
     Active Substance: CERTOLIZUMAB PEGOL
  2. BIRTH CONTROL [Concomitant]
     Active Substance: UNSPECIFIED INGREDIENT

REACTIONS (12)
  - Lethargy [None]
  - Presyncope [None]
  - Malaise [None]
  - Hypotension [None]
  - Arthralgia [None]
  - Injection site reaction [None]
  - Painful respiration [None]
  - Local reaction [None]
  - Neuralgia [None]
  - Urticaria [None]
  - Pain [None]
  - Hypokinesia [None]

NARRATIVE: CASE EVENT DATE: 20191029
